FAERS Safety Report 9505883 (Version 1)
Quarter: 2013Q1

REPORT INFORMATION
  Report Type: Spontaneous
  Country: US (occurrence: None)
  Receive Date: 20130219
  Receipt Date: 20130219
  Transmission Date: 20140127
  Serious: Yes (Other)
  Sender: FDA-Public Use
  Company Number: 1207USA010601

PATIENT
  Sex: Female

DRUGS (3)
  1. ZOCOR (SIMVASTATIN) [Suspect]
     Route: 048
  2. LIPITOR (ATORVASTATIN CALCIUM) [Suspect]
     Route: 048
  3. ATORVASTATIN CALCIUM (ATORVASTATIN CALCIUM) [Suspect]

REACTIONS (5)
  - Myalgia [None]
  - Hypersensitivity [None]
  - Paraesthesia [None]
  - Abdominal pain upper [None]
  - Arthralgia [None]
